FAERS Safety Report 4739892-5 (Version None)
Quarter: 2005Q3

REPORT INFORMATION
  Report Type: 
  Country: None (occurrence: None)
  Receive Date: 20050810
  Receipt Date: 20010105
  Transmission Date: 20060218
  Serious: No
  Sender: FDA-Public Use
  Company Number: US-GLAXOSMITHKLINE-A0341671A

PATIENT
  Age: 37 Year
  Sex: Male
  Weight: 77.1 kg

DRUGS (2)
  1. PAXIL [Suspect]
     Indication: DEPRESSION
     Dosage: 20MG PER DAY
     Route: 048
     Dates: start: 20001101
  2. XANAX [Concomitant]
     Dosage: .5MG AS REQUIRED

REACTIONS (16)
  - AFFECTIVE DISORDER [None]
  - AGGRESSION [None]
  - AGITATION [None]
  - ANGER [None]
  - ANXIETY [None]
  - CONFUSIONAL STATE [None]
  - DECREASED APPETITE [None]
  - DEPRESSION [None]
  - DRUG WITHDRAWAL SYNDROME [None]
  - FEELING ABNORMAL [None]
  - HEADACHE [None]
  - HYPERACUSIS [None]
  - INCOHERENT [None]
  - INSOMNIA [None]
  - MALAISE [None]
  - NAUSEA [None]
